FAERS Safety Report 14140748 (Version 1)
Quarter: 2017Q4

REPORT INFORMATION
  Report Type: Spontaneous
  Country: US (occurrence: US)
  Receive Date: 20171030
  Receipt Date: 20171030
  Transmission Date: 20180321
  Serious: No
  Sender: FDA-Public Use
  Company Number: US-PFIZER INC-2017458704

PATIENT
  Age: 68 Year
  Sex: Female
  Weight: 69.39 kg

DRUGS (4)
  1. IBRANCE [Suspect]
     Active Substance: PALBOCICLIB
     Indication: BREAST CANCER METASTATIC
     Dosage: 100 MG, CYCLIC (BREAKFAST,FOR 21 DAYS FOLLOWED BY A 7 DAY REST PERIOD. TAKE WITH FOOD)
     Route: 048
  2. XGEVA [Concomitant]
     Active Substance: DENOSUMAB
     Dosage: 120 MG, 1X/DAY
     Route: 058
     Dates: start: 201311
  3. FEMARA [Concomitant]
     Active Substance: LETROZOLE
     Dosage: 2.5 MG, DAILY
     Route: 048
     Dates: start: 201311
  4. BIOTIN [Concomitant]
     Active Substance: BIOTIN
     Indication: ALOPECIA
     Dosage: 1000 UG, 3X/DAY

REACTIONS (4)
  - Alopecia [Unknown]
  - Pulmonary mass [Unknown]
  - Fatigue [Unknown]
  - Vitamin D deficiency [Unknown]
